FAERS Safety Report 13673859 (Version 1)
Quarter: 2017Q2

REPORT INFORMATION
  Report Type: Spontaneous
  Country: US (occurrence: US)
  Receive Date: 20170621
  Receipt Date: 20170621
  Transmission Date: 20170830
  Serious: No
  Sender: FDA-Public Use
  Company Number: US-ZYDUS-011636

PATIENT
  Age: 75 Year
  Sex: Male

DRUGS (1)
  1. TAMSULOSIN/TAMSULOSIN HYDROCHLORIDE [Suspect]
     Active Substance: TAMSULOSIN HYDROCHLORIDE
     Indication: POLLAKIURIA
     Dates: start: 20160703, end: 20160707

REACTIONS (4)
  - Headache [Recovered/Resolved]
  - Pollakiuria [None]
  - Drug ineffective [Unknown]
  - Condition aggravated [None]

NARRATIVE: CASE EVENT DATE: 20160704
